FAERS Safety Report 5413552-X (Version None)
Quarter: 2007Q3

REPORT INFORMATION
  Report Type: 
  Country: None (occurrence: None)
  Receive Date: 20070814
  Receipt Date: 20070808
  Transmission Date: 20080115
  Serious: Yes (Hospitalization)
  Sender: FDA-Public Use
  Company Number: FR-AVENTIS-200712520FR

PATIENT
  Age: 56 Year
  Sex: Male
  Weight: 50 kg

DRUGS (13)
  1. CLAFORAN [Suspect]
     Route: 042
     Dates: start: 20070610, end: 20070620
  2. ZEFFIX [Suspect]
     Route: 048
     Dates: end: 20070621
  3. KALETRA [Suspect]
     Route: 048
     Dates: end: 20070621
  4. PROTEASE INHIBITORS [Suspect]
     Route: 048
     Dates: end: 20070621
  5. ACTRAPID [Concomitant]
  6. TRIATEC                            /00885601/ [Concomitant]
  7. LASILIX                            /00032601/ [Concomitant]
  8. TENORMIN [Concomitant]
  9. EUPRESSYL                          /00631801/ [Concomitant]
  10. LOXEN [Concomitant]
  11. NEXIUM [Concomitant]
  12. KAYEXALATE [Concomitant]
  13. CALCIPARINE [Concomitant]

REACTIONS (2)
  - CHOLELITHIASIS [None]
  - PANCREATITIS ACUTE [None]
